FAERS Safety Report 4750053-6 (Version None)
Quarter: 2005Q3

REPORT INFORMATION
  Report Type: 
  Country: None (occurrence: None)
  Receive Date: 20050822
  Receipt Date: 20050805
  Transmission Date: 20060218
  Serious: Yes (Hospitalization)
  Sender: FDA-Public Use
  Company Number: 2005EU001803

PATIENT
  Age: 63 Year
  Sex: Male

DRUGS (7)
  1. FK506(TACROLIMUS) CAPSULE [Suspect]
     Indication: RENAL TRANSPLANT
     Dosage: 2.50 MG, BID, ORAL
     Route: 048
     Dates: start: 20040308
  2. DACLIZUMAB(DACLIZUMAB) [Suspect]
     Indication: RENAL TRANSPLANT
     Dosage: 175.00 MG, D, IV NOS
     Route: 042
     Dates: start: 20040203, end: 20040329
  3. MYCOPHENOLATE MOFETIL (MYCOPHENOLATE MOFETIL) [Suspect]
     Indication: RENAL TRANSPLANT
     Dosage: 1000.00 MG, BID, ORAL
     Route: 048
     Dates: start: 20040203
  4. METHYLPREDNISOLONE (METYLPREDNISOLONE) [Suspect]
     Indication: RENAL TRANSPLANT
     Dosage: 6.00 MG, UID, QD
     Dates: start: 20040811
  5. BACTRIM DS [Concomitant]
  6. BISOPROLOL FUMARATE [Concomitant]
  7. ASAFLOW [Concomitant]

REACTIONS (7)
  - ANGINA UNSTABLE [None]
  - BRONCHITIS [None]
  - DYSURIA [None]
  - NEURILEMMOMA [None]
  - NOCTURIA [None]
  - SINUSITIS [None]
  - TRANSURETHRAL PROSTATECTOMY [None]
